FAERS Safety Report 19912536 (Version 1)
Quarter: 2021Q4

REPORT INFORMATION
  Report Type: Spontaneous
  Country: AU (occurrence: AU)
  Receive Date: 20211004
  Receipt Date: 20211004
  Transmission Date: 20220303
  Serious: Yes (Hospitalization)
  Sender: FDA-Public Use
  Company Number: AU-CELGENE-AUS-20210907642

PATIENT
  Age: 85 Year
  Sex: Female

DRUGS (17)
  1. AZACITIDINE [Suspect]
     Active Substance: AZACITIDINE
     Indication: Acute myeloid leukaemia
     Dosage: (75 MG/KG,1 IN 1 CYCLICAL)
     Route: 058
     Dates: start: 20200114
  2. AZACITIDINE [Suspect]
     Active Substance: AZACITIDINE
     Route: 058
     Dates: start: 20200120
  3. CUSATUZUMAB [Suspect]
     Active Substance: CUSATUZUMAB
     Indication: Acute myeloid leukaemia
     Dosage: (10 MG/KG,1 IN 1 CYCLICAL)
     Route: 041
     Dates: start: 20200117
  4. CUSATUZUMAB [Suspect]
     Active Substance: CUSATUZUMAB
     Route: 041
     Dates: start: 20200131
  5. ROSUVASTATIN [Concomitant]
     Active Substance: ROSUVASTATIN
     Indication: Hypertension
     Dosage: 10 MILLIGRAM
     Route: 048
     Dates: start: 2006
  6. VITAMIN D [Concomitant]
     Active Substance: VITAMIN D NOS
     Indication: Osteopenia
     Dosage: 25 MILLIGRAM
     Route: 048
     Dates: start: 2014
  7. THYROXINE [Concomitant]
     Active Substance: LEVOTHYROXINE
     Indication: Hypothyroidism
     Dosage: 50 MILLIGRAM
     Route: 048
     Dates: start: 20061120
  8. CALCIUM CITRATE [Concomitant]
     Active Substance: CALCIUM CITRATE
     Indication: Osteopenia
     Dosage: 250 MILLIGRAM
     Route: 048
     Dates: start: 2014
  9. OMEPRAZOLE [Concomitant]
     Active Substance: OMEPRAZOLE
     Indication: Gastrooesophageal reflux disease
     Dosage: 20 MILLIGRAM
     Route: 048
     Dates: start: 2015
  10. PANADOL [Concomitant]
     Active Substance: ACETAMINOPHEN
     Indication: Arthralgia
     Dosage: 665 MILLIGRAM
     Route: 048
     Dates: start: 2015
  11. Optifresh [Concomitant]
     Indication: Dry eye
     Route: 047
     Dates: start: 2015
  12. Cellufresh [Concomitant]
     Indication: Dry eye
     Route: 047
     Dates: start: 2015
  13. DEXAMETHASONE [Concomitant]
     Active Substance: DEXAMETHASONE
     Indication: Premedication
     Route: 041
     Dates: start: 20200117
  14. ACETAMINOPHEN [Concomitant]
     Active Substance: ACETAMINOPHEN
     Indication: Premedication
     Route: 048
     Dates: start: 20200117
  15. PROMETHAZINE [Concomitant]
     Active Substance: PROMETHAZINE HYDROCHLORIDE
     Indication: Premedication
     Route: 041
     Dates: start: 20200117
  16. AMLODIPINE [Concomitant]
     Active Substance: AMLODIPINE BESYLATE
     Indication: Hypertension
     Dosage: 5 MILLIGRAM
     Route: 048
     Dates: start: 2006, end: 20200201
  17. AMLODIPINE [Concomitant]
     Active Substance: AMLODIPINE BESYLATE
     Dosage: 2.5 MILLIGRAM
     Route: 048
     Dates: start: 20200201, end: 20200203

REACTIONS (1)
  - General physical health deterioration [Not Recovered/Not Resolved]

NARRATIVE: CASE EVENT DATE: 20200214
